FAERS Safety Report 4839201-7 (Version None)
Quarter: 2005Q4

REPORT INFORMATION
  Report Type: 
  Country: None (occurrence: None)
  Receive Date: 20051125
  Receipt Date: 20040923
  Transmission Date: 20060501
  Serious: Yes (Hospitalization)
  Sender: FDA-Public Use
  Company Number: HQWYE250524SEP04

PATIENT
  Age: 45 Year
  Sex: Female
  Weight: 72 kg

DRUGS (11)
  1. RAPAMUNE [Suspect]
     Indication: HEART TRANSPLANT
     Dosage: 1 MG 1X PER 1 DAY; ORAL
     Route: 048
     Dates: start: 20030101
  2. NEORAL [Concomitant]
  3. VASOTEC [Concomitant]
  4. LABETALOL [Concomitant]
  5. FERROUS GLUCONATE [Concomitant]
  6. OS-CAL + D (CALCIUM CARBONATE/COLECALCIFEROL) [Concomitant]
  7. MAGNESIUM OXIDE [Concomitant]
  8. PROTONIX [Concomitant]
  9. VITAMIN C (ASCORBIC ACID) [Concomitant]
  10. COLACE (DOCUSATE SODIUM) [Concomitant]
  11. SENOKOT [Concomitant]

REACTIONS (2)
  - ANAEMIA [None]
  - PYREXIA [None]
